FAERS Safety Report 5123008-X (Version None)
Quarter: 2006Q4

REPORT INFORMATION
  Report Type: 
  Country: None (occurrence: None)
  Receive Date: 20061009
  Receipt Date: 20060925
  Transmission Date: 20070319
  Serious: Yes (Death, Hospitalization)
  Sender: FDA-Public Use
  Company Number: GB-NOVOPROD-257221

PATIENT
  Age: 54 Year
  Sex: Female
  Weight: 69 kg

DRUGS (2)
  1. NOVOSEVEN [Suspect]
     Indication: HAEMORRHAGE
     Dosage: 7.2 MG, SINGLE
     Dates: start: 20040706
  2. HEPARIN [Concomitant]

REACTIONS (3)
  - ABDOMINAL SEPSIS [None]
  - HEPATIC INFARCTION [None]
  - MULTI-ORGAN FAILURE [None]
